FAERS Safety Report 10067155 (Version 1)
Quarter: 2014Q2

REPORT INFORMATION
  Report Type: Spontaneous
  Country: US (occurrence: None)
  Receive Date: 20140407
  Receipt Date: 20140407
  Transmission Date: 20141212
  Serious: Yes (Hospitalization)
  Sender: FDA-Public Use
  Company Number: UTC-046551

PATIENT
  Age: 23 Year
  Sex: Female

DRUGS (5)
  1. REMODULIN (2.5 MILLIGRAM/MILLILITERS, INJECTION FOR INFUSION) (TREPROSTINIL SODIUM) [Suspect]
     Indication: PULMONARY ARTERIAL HYPERTENSION
     Dosage: 0.059 UG/KG 1 IN 1 MIN
     Route: 058
     Dates: start: 20130417
  2. FUROSEMIDE (FUROSEMIDE) [Concomitant]
  3. ENLAPRIL (ENLAPRIL) [Concomitant]
  4. REVATIO (SILDENAFIL) [Concomitant]
  5. LETAIRIS (AMBRISENTAN) (TABLETS) [Concomitant]

REACTIONS (1)
  - Back pain [None]
